FAERS Safety Report 6035560-0 (Version None)
Quarter: 2009Q1

REPORT INFORMATION
  Report Type: 
  Country: None (occurrence: None)
  Receive Date: 20090113
  Receipt Date: 20080106
  Transmission Date: 20090719
  Serious: No
  Sender: FDA-Public Use
  Company Number: US-BAYER-200910404NA

PATIENT
  Age: 68 Year
  Sex: Female
  Weight: 100 kg

DRUGS (15)
  1. CLIMARA [Suspect]
     Indication: MENOPAUSAL SYMPTOMS
     Route: 062
     Dates: start: 20080101, end: 20080901
  2. TOPAMAX [Concomitant]
  3. ALLEGRA [Concomitant]
  4. POTASSIUM CHLORIDE [Concomitant]
  5. CRESTOR [Concomitant]
  6. FOSAMAX NOS [Concomitant]
  7. ADVAIR DISKUS 250/50 [Concomitant]
  8. NASACORT [Concomitant]
  9. ALBUTEROL [Concomitant]
  10. VITAMIN E [Concomitant]
  11. ASCORBIC ACID [Concomitant]
  12. CALCIUM WITH D [Concomitant]
  13. LUTEINE [Concomitant]
  14. VITAMIN B [Concomitant]
  15. LOVAZA [Concomitant]

REACTIONS (3)
  - APPLICATION SITE ERYTHEMA [None]
  - APPLICATION SITE PRURITUS [None]
  - APPLICATION SITE REACTION [None]
